FAERS Safety Report 8602403 (Version 2)
Quarter: 2012Q4

REPORT INFORMATION
  Report Type: 
  Country: US (occurrence: US)
  Receive Date: 20120607
  Receipt Date: 20120829
  Transmission Date: 20130627
  Serious: Yes (Other)
  Sender: FDA-Public Use
  Company Number: US-COVIDIEN/TYCO HEALTHCARE/MALLINCKRODT-T201202466

PATIENT
  Sex: Female
  Weight: 44.44 kg

DRUGS (8)
  1. ANAFRANIL CAPSULES [Suspect]
     Indication: OBSESSIVE-COMPULSIVE DISORDER
     Dosage: 225 mg, qd
     Route: 048
     Dates: start: 1990, end: 2012
  2. ANAFRANIL CAPSULES [Suspect]
     Dosage: 150 mg, qd
     Dates: start: 2012, end: 2012
  3. ANAFRANIL CAPSULES [Suspect]
     Dosage: 75 mg, qd
     Dates: start: 2012, end: 2012
  4. ANAFRANIL CAPSULES [Suspect]
     Dosage: 50 mg, qd
     Dates: start: 2012, end: 2012
  5. ANAFRANIL CAPSULES [Suspect]
     Dosage: 25 mg, qd
     Dates: start: 2012, end: 201205
  6. ALCOHOL [Concomitant]
     Indication: SUBSTANCE USE
     Dosage: 2-4 drinks / day
     Dates: end: 2011
  7. SYNTHROID [Concomitant]
     Indication: GOITRE
     Dosage: 75 mg, qd
  8. SYNTHROID [Concomitant]
     Indication: THYROID DISORDER

REACTIONS (8)
  - Depression [Not Recovered/Not Resolved]
  - Aphagia [Not Recovered/Not Resolved]
  - Memory impairment [Not Recovered/Not Resolved]
  - Tachycardia [Not Recovered/Not Resolved]
  - Cardiac flutter [Not Recovered/Not Resolved]
  - Derealisation [Not Recovered/Not Resolved]
  - Salivary gland enlargement [Not Recovered/Not Resolved]
  - Headache [Unknown]
